FAERS Safety Report 18174827 (Version 1)
Quarter: 2020Q3

REPORT INFORMATION
  Report Type: Spontaneous
  Country: DE (occurrence: DE)
  Receive Date: 20200820
  Receipt Date: 20200820
  Transmission Date: 20201103
  Serious: Yes (Hospitalization)
  Sender: FDA-Public Use
  Company Number: DE-TEVA-2020-DE-1815704

PATIENT
  Age: 91 Year
  Sex: Female
  Weight: 60 kg

DRUGS (8)
  1. ZOLPIDEM [Concomitant]
     Active Substance: ZOLPIDEM TARTRATE
     Dosage: 2.5 MILLIGRAM DAILY;  0?0?1?0
     Route: 048
  2. MIRTAZAPIN [Suspect]
     Active Substance: MIRTAZAPINE
     Dosage: 30 MILLIGRAM DAILY;  0?0?1?0
     Route: 048
  3. VIGANTOL 1000I.E. VITAMIN D3 [Concomitant]
     Dosage: 1 DOSAGE FORMS DAILY; 1000 IE, 1?0?0?0
     Route: 048
  4. METAMIZOLE [Suspect]
     Active Substance: METAMIZOLE
     Dosage: IF NECESSARY
     Route: 048
  5. CITALOPRAM [Concomitant]
     Active Substance: CITALOPRAM HYDROBROMIDE
     Dosage: 20 MILLIGRAM DAILY;  1?0?0?0
     Route: 048
  6. BISOPROLOL [Concomitant]
     Active Substance: BISOPROLOL
     Dosage: 5 MILLIGRAM DAILY;  1?0?0?0
     Route: 048
  7. RAMIPRIL. [Concomitant]
     Active Substance: RAMIPRIL
     Dosage: 2.5 MILLIGRAM DAILY;  1?0?0?0
     Route: 048
  8. TRIAMTEREN COMP 50/25?1A PHARMA [Concomitant]
     Dosage: 1 DOSAGE FORMS DAILY; 25|50 MG, 1?0?0?0
     Route: 048

REACTIONS (6)
  - Abdominal pain [Recovering/Resolving]
  - Musculoskeletal pain [Recovering/Resolving]
  - Vomiting [Recovering/Resolving]
  - Immobile [Recovering/Resolving]
  - Back pain [Recovering/Resolving]
  - Nausea [Recovering/Resolving]
